FAERS Safety Report 20192544 (Version 1)
Quarter: 2021Q4

REPORT INFORMATION
  Report Type: Spontaneous
  Country: US (occurrence: US)
  Receive Date: 20211216
  Receipt Date: 20211216
  Transmission Date: 20220303
  Serious: No
  Sender: FDA-Public Use
  Company Number: US-ENDO PHARMACEUTICALS INC-2021-001474

PATIENT
  Age: 63 Year
  Sex: Male

DRUGS (2)
  1. XIAFLEX [Suspect]
     Active Substance: COLLAGENASE CLOSTRIDIUM HISTOLYTICUM
     Indication: Peyronie^s disease
     Dosage: UNK UNKNOWN, UNKNOWN CYCLE
     Route: 065
     Dates: start: 20210225
  2. XIAFLEX [Suspect]
     Active Substance: COLLAGENASE CLOSTRIDIUM HISTOLYTICUM
     Dosage: UNK UNKNOWN, (COMPLETED 3 CYCLES)
     Route: 065

REACTIONS (3)
  - Pain [Unknown]
  - Discomfort [Unknown]
  - Swelling [Unknown]

NARRATIVE: CASE EVENT DATE: 20210225
